FAERS Safety Report 5138412-3 (Version None)
Quarter: 2006Q4

REPORT INFORMATION
  Report Type: 
  Country: None (occurrence: None)
  Receive Date: 20061030
  Receipt Date: 20060220
  Transmission Date: 20070319
  Serious: No
  Sender: FDA-Public Use
  Company Number: US-GLAXOSMITHKLINE-A0594410A

PATIENT
  Age: 58 Year
  Sex: Female

DRUGS (9)
  1. ADVAIR DISKUS 250/50 [Suspect]
     Indication: CHRONIC OBSTRUCTIVE PULMONARY DISEASE
     Route: 055
  2. SPIRIVA [Concomitant]
  3. POTASSIUM ACETATE [Concomitant]
  4. LASIX [Concomitant]
  5. ALDACTONE [Concomitant]
  6. CELEXA [Concomitant]
  7. VERAPAMIL [Concomitant]
  8. PROTONIX [Concomitant]
  9. ZOCOR [Concomitant]

REACTIONS (1)
  - MEDICATION ERROR [None]
